FAERS Safety Report 5230620-6 (Version None)
Quarter: 2007Q1

REPORT INFORMATION
  Report Type: 
  Country: None (occurrence: None)
  Receive Date: 20070206
  Receipt Date: 20070131
  Transmission Date: 20070707
  Serious: Yes (Hospitalization)
  Sender: FDA-Public Use
  Company Number: GB-GLAXOSMITHKLINE-B0359481A

PATIENT
  Sex: Female

DRUGS (4)
  1. PAROXETINE HYDROCHLORIDE [Suspect]
     Indication: NECK PAIN
     Route: 065
     Dates: start: 19990101
  2. CARBAMAZEPINE [Concomitant]
  3. CHLORDIAZEPOXIDE [Concomitant]
  4. ZOPICLONE [Concomitant]
     Route: 065

REACTIONS (21)
  - AGGRESSION [None]
  - ALCOHOLISM [None]
  - CONTUSION [None]
  - DRUG WITHDRAWAL SYNDROME [None]
  - DYSPHAGIA [None]
  - DYSPNOEA [None]
  - EARLY MORNING AWAKENING [None]
  - ELECTRIC SHOCK [None]
  - FACIAL PAIN [None]
  - HALLUCINATION, VISUAL [None]
  - HYPOAESTHESIA [None]
  - HYPOAESTHESIA ORAL [None]
  - INSOMNIA [None]
  - INTENTIONAL SELF-INJURY [None]
  - IRRITABILITY [None]
  - LYMPHADENOPATHY [None]
  - OVERDOSE [None]
  - PHARYNGEAL INFLAMMATION [None]
  - SUICIDE ATTEMPT [None]
  - TRISMUS [None]
  - WEIGHT DECREASED [None]
